FAERS Safety Report 21609815 (Version 2)
Quarter: 2022Q4

REPORT INFORMATION
  Report Type: Spontaneous
  Country: CH (occurrence: CH)
  Receive Date: 20221117
  Receipt Date: 20221122
  Transmission Date: 20230113
  Serious: Yes (Life-Threatening, Hospitalization)
  Sender: FDA-Public Use
  Company Number: None

PATIENT
  Age: 59 Year
  Sex: Male

DRUGS (56)
  1. REMERON [Suspect]
     Active Substance: MIRTAZAPINE
     Dosage: 1 DOSAGE FORM, REMERON (MIRTAZAPIN) FROM 26.11.2021 TO 08.12.2021
     Route: 048
     Dates: start: 20211126, end: 20211208
  2. AMBISOME [Suspect]
     Active Substance: AMPHOTERICIN B
     Dosage: 1 DOSAGE FORM, AMBISOME (AMPHOTERICIN B) FROM 04.12.2021 TO 09.12.2021
     Dates: start: 20211204, end: 20211209
  3. NOXAFIL [Suspect]
     Active Substance: POSACONAZOLE
     Dosage: 1 DOSAGE FORM, NOXAFIL (POSACONAZOL) FROM 15.11.2021 - 04.12.2021
     Route: 048
     Dates: start: 20211115, end: 20211204
  4. CEFEPIME [Suspect]
     Active Substance: CEFEPIME HYDROCHLORIDE
     Dosage: 1 DOSAGE FORM, CEFEPIME FROM 09.11.2021 - 05.12.2021
     Dates: start: 20211109, end: 20211205
  5. VANCOMYCIN [Suspect]
     Active Substance: VANCOMYCIN
     Dosage: 1 DOSAGE FORM, VANCOMYCIN FROM 15.11.2021 TO 16.11.2021 AND 30.11.2021 - 06.12.2021 AND ON 20.12.202
     Dates: start: 20211115, end: 20211116
  6. VANCOMYCIN [Suspect]
     Active Substance: VANCOMYCIN
     Dosage: 1 DOSAGE FORM, VANCOMYCIN FROM 15.11.2021 TO 16.11.2021 AND 30.11.2021 - 06.12.2021 AND ON 20.12.202
     Dates: start: 20211130, end: 20211206
  7. VANCOMYCIN [Suspect]
     Active Substance: VANCOMYCIN
     Dosage: 1 DOSAGE FORM, VANCOMYCIN FROM 15.11.2021 TO 16.11.2021 AND 30.11.2021 - 06.12.2021 AND ON 20.12.202
     Dates: start: 20211220, end: 20211220
  8. MEROPENEM [Suspect]
     Active Substance: MEROPENEM
     Dosage: 1 DOSAGE FORM, MEROPENEM FROM 15.11.2021 ? 16.11.2021 AND 05.12.2021 - 13.12.2021 AND ON 20.12.2021
     Dates: start: 20211115, end: 20211116
  9. MEROPENEM [Suspect]
     Active Substance: MEROPENEM
     Dosage: 1 DOSAGE FORM, MEROPENEM FROM 15.11.2021 ? 16.11.2021 AND 05.12.2021 - 13.12.2021 AND ON 20.12.2021
     Dates: start: 20211205, end: 20211213
  10. MEROPENEM [Suspect]
     Active Substance: MEROPENEM
     Dosage: 1 DOSAGE FORM, MEROPENEM FROM 15.11.2021 ? 16.11.2021 AND 05.12.2021 - 13.12.2021 AND ON 20.12.2021
     Dates: start: 20211220, end: 20211220
  11. ACETAMINOPHEN [Suspect]
     Active Substance: ACETAMINOPHEN
     Dosage: 1 DOSAGE FORM, PARACETAMOL FROM 10.11.2021 TO 09.12.2021
     Dates: start: 20211110, end: 20211209
  12. LORAZEPAM [Suspect]
     Active Substance: LORAZEPAM
     Dosage: 1 DOSAGE FORM, TEMESTA (LORAZEPAM) FROM 26.11.2021 AND 04.12.2021
     Dates: start: 20211126, end: 20211204
  13. ROCURONIUM BROMIDE [Suspect]
     Active Substance: ROCURONIUM BROMIDE
     Dosage: 1 DOSAGE FORM, ESMERON (ROCURONIUM BROMID) FROM 16.11.2021 TO 09.12.2021
     Route: 048
     Dates: start: 20211116, end: 20211209
  14. METRONIDAZOLE [Suspect]
     Active Substance: METRONIDAZOLE
     Dosage: 1 DOSAGE FORM,  METRONIDAZOL FROM 10.11.2021 - 14.11.2021 AND 21.11.2021 - 05.12.2021
     Dates: start: 20211110, end: 20211114
  15. METRONIDAZOLE [Suspect]
     Active Substance: METRONIDAZOLE
     Dosage: 1 DOSAGE FORM, METRONIDAZOL FROM 10.11.2021 - 14.11.2021 AND 21.11.2021 - 05.12.2021
     Dates: start: 20211121, end: 20211205
  16. DOXYCYCLINE [Concomitant]
     Active Substance: DOXYCYCLINE
     Dosage: 1 DOSAGE FORM, 12.11.2021 - 18.11.2021: DOXYCYCLIN
     Dates: start: 20211112, end: 20211118
  17. BACTRIM [Concomitant]
     Active Substance: SULFAMETHOXAZOLE\TRIMETHOPRIM
     Dosage: 1 DOSAGE FORM, 15.11.2021 ? 20.12.2021: BACTRIM (SULFAMETHOXAZOL UND TRIMETHOPRIM)
     Dates: start: 20211115, end: 20211220
  18. VALTREX [Concomitant]
     Active Substance: VALACYCLOVIR HYDROCHLORIDE
     Dosage: 1 DOSAGE FORM, 10.11.2021 - 20.12.2021: VALTREX (VALACICLOVIR)
     Dates: start: 20211110, end: 20211220
  19. CLARITHROMYCIN [Concomitant]
     Active Substance: CLARITHROMYCIN
     Dosage: 1 DOSAGE FORM, 09.11.2021 - 12.11.2021: KLACID (CLARITHROMYCIN)
     Dates: start: 20211109, end: 20211112
  20. SOLU-MEDROL [Concomitant]
     Active Substance: METHYLPREDNISOLONE SODIUM SUCCINATE
     Dosage: 1 DOSAGE FORM, 09.12.2021 - 20.12.2021 SOLU-MEDROL (METHYLPREDNISOLON)
     Dates: start: 20211209, end: 20211220
  21. ALUCOL [ALGELDRATE;MAGNESIUM HYDROXIDE] [Concomitant]
     Dosage: 1 DOSAGE FORM, ALUCOL (ALUMINIUMOXID / MAGNESIUMHYDROXID) GEL FROM 10.11.2021 TO 02.12.2021
     Dates: start: 20211110, end: 20211202
  22. AMLODIPINE BESYLATE [Concomitant]
     Active Substance: AMLODIPINE BESYLATE
     Dosage: 1 DOSAGE FORM, AMLODIPIN FROM 25.11.2021 TO 02.12.2021
     Dates: start: 20211125, end: 20211202
  23. ATROVENT [Concomitant]
     Active Substance: IPRATROPIUM BROMIDE
     Dosage: 1 DOSAGE FORM, ATROVENT (IPRATROPIUM) FROM 14.11.2022 TO 20.12.2021
     Dates: start: 20211114, end: 20211220
  24. THIAMINE HYDROCHLORIDE [Concomitant]
     Active Substance: THIAMINE HYDROCHLORIDE
     Dosage: 1 DOSAGE FORM, BENERVA(VITAMIN B1) FROM 12.12.2021 TO 20.12.2021
     Dates: start: 20211212, end: 20211220
  25. CORDARONE [Concomitant]
     Active Substance: AMIODARONE HYDROCHLORIDE
     Dosage: 1 DOSAGE FORM, CORDARONE (AMIODARON) FROM 20.11.2021 TO 20.12.2021
     Dates: start: 20211120, end: 20211220
  26. DEXMEDETOMIDINE HYDROCHLORIDE [Concomitant]
     Active Substance: DEXMEDETOMIDINE HYDROCHLORIDE
     Dosage: 1 DOSAGE FORM, DEXDOR (DEXMEDETOMIDIN) FROM 18.12.2021 TO 20.12.2021
     Dates: start: 20211218, end: 20211220
  27. DIGOXIN [Concomitant]
     Active Substance: DIGOXIN
     Dosage: 1 DOSAGE FORM, DIGOXIN FROM 02.12.2021 TO 03.12.2021 AND ON 16.12.2021
     Dates: start: 20211202, end: 20211203
  28. DIGOXIN [Concomitant]
     Active Substance: DIGOXIN
     Dosage: 1 DOSAGE FORM, DIGOXIN FROM 02.12.2021 TO 03.12.2021 AND ON 16.12.2021
     Dates: start: 20211216, end: 20211216
  29. MIDAZOLAM HYDROCHLORIDE [Concomitant]
     Active Substance: MIDAZOLAM HYDROCHLORIDE
     Dosage: 1 DOSAGE FORM, DORMICUM (MIDAZOLAM) FROM 10.11.2021 TO 16.12.2021
     Dates: start: 20211110, end: 20211216
  30. DUPHALAC [Concomitant]
     Active Substance: LACTULOSE
     Dosage: 1 DOSAGE FORM, DUPHALAC (LACTULOSE) FROM 11.12.2021 TO 19.12.2021
     Dates: start: 20211211, end: 20211219
  31. FASTURTEC [Concomitant]
     Active Substance: RASBURICASE
     Dosage: 1 DOSAGE FORM, FASTURTEC (RASBURICASE) FROM 09.11.2021 TO 17.11.2021
     Dates: start: 20211109, end: 20211117
  32. FENTANYL [Concomitant]
     Active Substance: FENTANYL
     Dosage: 1 DOSAGE FORM, FENTANYL FROM 16.11.2021 TO 19.12.2021
     Dates: start: 20211116, end: 20211219
  33. HEPARIN [Concomitant]
     Active Substance: HEPARIN SODIUM
     Dosage: 1 DOSAGE FORM, HEPARIN FROM 12.12.2021 TO 20.12.2021
     Dates: start: 20211212, end: 20211220
  34. NOVORAPID [Concomitant]
     Active Substance: INSULIN ASPART
     Dosage: 1 DOSAGE FORM, INSULIN NOVORAPID (INSULIN ASPART) FROM 16.11.2021 TO 17.12.2021
     Dates: start: 20211116, end: 20211217
  35. KONAKION [Concomitant]
     Active Substance: PHYTONADIONE
     Dosage: 1 DOSAGE FORM, KONAKION (PHYTOMENADION) FROM 16.11.2021 TO 20.12.2021
     Dates: start: 20211116, end: 20211220
  36. LASIX [Concomitant]
     Active Substance: FUROSEMIDE
     Dosage: 1 DOSAGE FORM, LASIX (FUROSEMID) FROM 11.11.2021 TO 18.11.2021
     Dates: start: 20211111, end: 20211118
  37. SODIUM PICOSULFATE [Concomitant]
     Active Substance: SODIUM PICOSULFATE
     Dosage: 1 DOSAGE FORM, LAXOBERON (NATRIUM-PICOSULFAT) FROM 17.11.2021 AND 19.11.2021
     Dates: start: 20211117, end: 20211119
  38. DOLOPHINE [Concomitant]
     Active Substance: METHADONE HYDROCHLORIDE
     Dosage: 1 DOSAGE FORM, METHADON FROM 03.12.2021 AND 13.12.2021
     Dates: start: 20211203, end: 20211213
  39. METOCLOPRAMIDE HYDROCHLORIDE [Concomitant]
     Active Substance: METOCLOPRAMIDE HYDROCHLORIDE
     Dosage: 1 DOSAGE FORM, METOCLOPRAMID FROM 11.11.2021 AND 14.12.2021
     Dates: start: 20211111, end: 20211214
  40. METOPROLOL [Concomitant]
     Active Substance: METOPROLOL
     Dosage: 1 DOSAGE FORM, METOPROLOL FROM 24.11.2021 TO 16.12.2021
     Dates: start: 20211124, end: 20211216
  41. MORPHINE SULFATE [Concomitant]
     Active Substance: MORPHINE SULFATE
     Dosage: 1 DOSAGE FORM, MORPHIN FROM 10.11.2021 TO 20.12.2021
     Dates: start: 20211011, end: 20211220
  42. ESOMEPRAZOLE MAGNESIUM [Concomitant]
     Active Substance: ESOMEPRAZOLE MAGNESIUM
     Dosage: 1 DOSAGE FORM, NEXIUM MUPS (ESOMEPRAZOL) FROM 10.11.2021 TO 14.11.2021
     Dates: start: 20211110, end: 20211114
  43. NORADRENALINA [NOREPINEPHRINE] [Concomitant]
     Dosage: 1 DOSAGE FORM, NORADRENALIN FROM 15.11.2021 TO 20.12.2021
     Dates: start: 20211115, end: 20211220
  44. NOVALGIN (METAMIZOLE SODIUM) [Concomitant]
     Active Substance: METAMIZOLE SODIUM
     Dosage: 1 DOSAGE FORM, NOVALGIN (METAMIZOL) FROM 12.11.2021 TO 5.11.2021
     Dates: start: 20211112, end: 20211115
  45. OLMESARTAN [Concomitant]
     Active Substance: OLMESARTAN
     Dosage: 1 DOSAGE FORM, OLMESARTAN FROM 10.11.2021 TO 17.12.2021
     Dates: start: 20211110, end: 20211217
  46. ONDANSETRON [Concomitant]
     Active Substance: ONDANSETRON
     Dosage: 1 DOSAGE FORM, ONDANSETRON FROM 10.11.2021 TO  22.11.2021
     Dates: start: 20211110, end: 20211122
  47. PANTOZOL [Concomitant]
     Active Substance: PANTOPRAZOLE SODIUM
     Dosage: 1 DOSAGE FORM, PANTOZOL (PANTOPRAZOL) FROM 14.11.2021 TO 19.12.2021
     Dates: start: 20211114, end: 20211219
  48. PHOSCAP [Concomitant]
     Dosage: 1 DOSAGE FORM, PHOSCAP FROM 09.12.2021 TO 10.12.2021
     Dates: start: 20211209, end: 20211210
  49. PROPOFOL [Concomitant]
     Active Substance: PROPOFOL
     Dosage: 1 DOSAGE FORM, PROPOFOL FROM 16.11.2021 TO 13.12.2021
     Dates: start: 20211116, end: 20211213
  50. RENAGEL [SEVELAMER CARBONATE] [Concomitant]
     Dosage: 1 DOSAGE FORM, RENAGEL (SEVELAMER) FROM 25.11.2021 TO 01.12.2021
     Dates: start: 20211125, end: 20211201
  51. ALBUTEROL [Concomitant]
     Active Substance: ALBUTEROL
     Dosage: 1 DOSAGE FORM, SALBUTAMOL FROM 14.11.2021 TO 20.12.2021
     Dates: start: 20211114, end: 20211220
  52. TRACRIUM [Concomitant]
     Active Substance: ATRACURIUM BESYLATE
     Dosage: 1 DOSAGE FORM, TRACRIUM (ATRACURIUM) FROM 22.11.2021 TO 07.12.2021
     Dates: start: 20211122, end: 20211207
  53. TRANSIPEG [MACROGOL 3350;POTASSIUM CHLORIDE;SODIUM BICARBONATE;SODIUM [Concomitant]
     Dosage: 1 DOSAGE FORM, TRANSIPEG (MACROGOL, KOMBINATIONEN) FROM 16.11.2021 TO 08.12.2021
     Dates: start: 20211116, end: 20211208
  54. URAPIDIL [Concomitant]
     Active Substance: URAPIDIL
     Dosage: 1 DOSAGE FORM, URAPIDIL FROM 24.11.2021 TO 25.11.2021
     Dates: start: 20211124, end: 20211125
  55. ALLOPURINOL [Concomitant]
     Active Substance: ALLOPURINOL
     Dosage: 1 DOSAGE FORM, ZYLORIC (ALLOPURINOL) FROM 10.11.2021 TO 20.12.2021
     Dates: start: 20211110, end: 20211220
  56. XIFAXAN [Concomitant]
     Active Substance: RIFAXIMIN
     Dosage: 1 DOSAGE FORM, XIFAXAN (RIFAXIMIN) FROM 11.12.2021 TO 20.12.2021
     Dates: start: 20211211, end: 20211220

REACTIONS (1)
  - Drug-induced liver injury [Not Recovered/Not Resolved]

NARRATIVE: CASE EVENT DATE: 20211208
